FAERS Safety Report 18259166 (Version 2)
Quarter: 2020Q4

REPORT INFORMATION
  Report Type: Report from Study
  Country: CR (occurrence: CR)
  Receive Date: 20200911
  Receipt Date: 20201101
  Transmission Date: 20210113
  Serious: Yes (Other)
  Sender: FDA-Public Use
  Company Number: NVSC2020CR246428

PATIENT
  Age: 22 Year
  Sex: Female

DRUGS (2)
  1. GILENYA [Suspect]
     Active Substance: FINGOLIMOD HYDROCHLORIDE
     Indication: RELAPSING-REMITTING MULTIPLE SCLEROSIS
     Dosage: 0.5 MG (1 YEAR 7 MONTHS AGO)
     Route: 065
  2. GILENYA [Suspect]
     Active Substance: FINGOLIMOD HYDROCHLORIDE
     Indication: MULTIPLE SCLEROSIS
     Dosage: 0.5 MG, QD
     Route: 048
     Dates: start: 20181221

REACTIONS (6)
  - Neuritis [Unknown]
  - Blindness [Recovering/Resolving]
  - Ill-defined disorder [Unknown]
  - Bradyphrenia [Recovering/Resolving]
  - Acne [Unknown]
  - Slow speech [Recovering/Resolving]

NARRATIVE: CASE EVENT DATE: 202006
